FAERS Safety Report 4946506-8 (Version None)
Quarter: 2006Q1

REPORT INFORMATION
  Report Type: 
  Country: None (occurrence: None)
  Receive Date: 20060313
  Receipt Date: 20060301
  Transmission Date: 20060701
  Serious: Yes (Hospitalization)
  Sender: FDA-Public Use
  Company Number: 060023

PATIENT
  Age: 59 Year
  Sex: Male

DRUGS (1)
  1. HALFLYTELY [Suspect]
     Indication: COLONOSCOPY
     Dosage: 20MG/2L, 1X, PO
     Route: 048
     Dates: start: 20060201

REACTIONS (3)
  - COLITIS [None]
  - GASTROINTESTINAL DISORDER [None]
  - MUSCLE SPASMS [None]
